FAERS Safety Report 14205694 (Version 1)
Quarter: 2017Q4

REPORT INFORMATION
  Report Type: Spontaneous
  Country: US (occurrence: US)
  Receive Date: 20171120
  Receipt Date: 20171120
  Transmission Date: 20180321
  Serious: Yes (Disabling)
  Sender: FDA-Public Use
  Company Number: US-SA-2017SA225022

PATIENT
  Age: 71 Year
  Sex: Female

DRUGS (6)
  1. ALLEGRA [Suspect]
     Active Substance: FEXOFENADINE HYDROCHLORIDE
     Route: 048
  2. DUPIXENT [Suspect]
     Active Substance: DUPILUMAB
     Indication: ECZEMA
     Dosage: 1ST WEEK?150MG/LML
     Route: 065
     Dates: start: 20170608, end: 20170608
  3. DUPIXENT [Suspect]
     Active Substance: DUPILUMAB
     Indication: ECZEMA
     Dosage: LAST WEEK
     Route: 065
     Dates: start: 20170910, end: 20170910
  4. DUPIXENT [Suspect]
     Active Substance: DUPILUMAB
     Indication: DERMATITIS ATOPIC
     Dosage: LAST WEEK
     Route: 065
     Dates: start: 20170910, end: 20170910
  5. LOSARTAN. [Concomitant]
     Active Substance: LOSARTAN
     Indication: HYPERTENSION
     Route: 048
  6. DUPIXENT [Suspect]
     Active Substance: DUPILUMAB
     Indication: DERMATITIS ATOPIC
     Dosage: 1ST WEEK?150MG/LML
     Route: 065
     Dates: start: 20170608, end: 20170608

REACTIONS (3)
  - Mycosis fungoides [Recovering/Resolving]
  - Rash pruritic [Unknown]
  - Skin mass [Not Recovered/Not Resolved]

NARRATIVE: CASE EVENT DATE: 20170710
